FAERS Safety Report 9832278 (Version 1)
Quarter: 2014Q1

REPORT INFORMATION
  Report Type: Report from Study
  Country: CA (occurrence: CA)
  Receive Date: 20140121
  Receipt Date: 20140121
  Transmission Date: 20141002
  Serious: Yes (Other)
  Sender: FDA-Public Use
  Company Number: CA-BRISTOL-MYERS SQUIBB COMPANY-20036372

PATIENT
  Age: 46 Year
  Sex: Female

DRUGS (14)
  1. ORENCIA [Suspect]
     Indication: RHEUMATOID ARTHRITIS
     Dosage: 1DF:750 UNITS NOS
     Dates: start: 2012
  2. TYLENOL [Concomitant]
  3. FLURBIPROFEN [Concomitant]
  4. ATACAND [Concomitant]
  5. PANTOPRAZOLE [Concomitant]
  6. KADIAN [Concomitant]
  7. METFORMIN [Concomitant]
  8. ATORVASTATIN [Concomitant]
  9. FOLIC ACID [Concomitant]
  10. ACTONEL [Concomitant]
  11. PREDNISONE [Concomitant]
  12. CARBOCAL [Concomitant]
  13. LYRICA [Concomitant]
  14. INSULIN [Concomitant]

REACTIONS (1)
  - Depression [Unknown]
